FAERS Safety Report 5061432-4 (Version None)
Quarter: 2006Q3

REPORT INFORMATION
  Report Type: 
  Country: None (occurrence: None)
  Receive Date: 20060719
  Receipt Date: 20060719
  Transmission Date: 20061208
  Serious: Yes (Hospitalization)
  Sender: FDA-Public Use
  Company Number: None

PATIENT
  Age: 86 Year
  Sex: Male

DRUGS (7)
  1. METOPROLOL TARTRATE [Suspect]
     Indication: HYPERTENSION
     Dosage: 100 MG BID
     Dates: start: 20060301
  2. MS CONTIN [Concomitant]
  3. OXYCODONE HCL [Concomitant]
  4. DIGOXIN [Concomitant]
  5. TAMSULOSIN HCL [Concomitant]
  6. SENOKOT [Concomitant]
  7. OMEPRAZOLE [Concomitant]

REACTIONS (1)
  - BRADYCARDIA [None]
